FAERS Safety Report 9237965 (Version 1)
Quarter: 2013Q1

REPORT INFORMATION
  Report Type: Spontaneous
  Country: US (occurrence: None)
  Receive Date: 20121107
  Receipt Date: 20121107
  Transmission Date: 20140127
  Serious: No
  Sender: FDA-Public Use
  Company Number: 2012HGS-003744

PATIENT
  Age: 46 Year
  Sex: Female
  Weight: 106.6 kg

DRUGS (2)
  1. BENLYSTA [Suspect]
     Dates: start: 20111216, end: 20120501
  2. ORENCIA (ABATACEPT) [Concomitant]

REACTIONS (3)
  - Dyspnoea [None]
  - Hot flush [None]
  - Rash [None]
